FAERS Safety Report 7087157-1 (Version None)
Quarter: 2010Q4

REPORT INFORMATION
  Report Type: 
  Country: None (occurrence: None)
  Receive Date: 20101106
  Receipt Date: 20101029
  Transmission Date: 20110411
  Serious: No
  Sender: FDA-Public Use
  Company Number: US-WYE-H18496110

PATIENT
  Sex: Female

DRUGS (3)
  1. PRISTIQ [Suspect]
     Dosage: UNKNOWN
     Dates: start: 20101010
  2. ALEVE (CAPLET) [Concomitant]
  3. KLONOPIN [Concomitant]

REACTIONS (2)
  - ANXIETY [None]
  - DEPRESSED MOOD [None]
